FAERS Safety Report 20578575 (Version 2)
Quarter: 2022Q1

REPORT INFORMATION
  Report Type: Spontaneous
  Country: US (occurrence: US)
  Receive Date: 20220310
  Receipt Date: 20220331
  Transmission Date: 20220423
  Serious: Yes (Hospitalization, Other)
  Sender: FDA-Public Use
  Company Number: US-SA-SAC20220308000279

PATIENT
  Age: 67 Year
  Sex: Male

DRUGS (1)
  1. DUPIXENT [Suspect]
     Active Substance: DUPILUMAB
     Indication: Dermatitis
     Dosage: 300 MG, QOW
     Route: 058
     Dates: start: 202102

REACTIONS (6)
  - Seizure [Not Recovered/Not Resolved]
  - Cardiac disorder [Unknown]
  - Fall [Unknown]
  - Head injury [Unknown]
  - Unevaluable event [Unknown]
  - Product use in unapproved indication [Unknown]
